FAERS Safety Report 16877594 (Version 1)
Quarter: 2019Q4

REPORT INFORMATION
  Report Type: Spontaneous
  Country: US (occurrence: US)
  Receive Date: 20191002
  Receipt Date: 20191002
  Transmission Date: 20200122
  Serious: Yes (Disabling)
  Sender: FDA-Public Use
  Company Number: None

PATIENT
  Age: 80 Year
  Sex: Female
  Weight: 67.5 kg

DRUGS (9)
  1. WOMEN 50# [Concomitant]
  2. CALTRATE 600 + D3 PLUS MINERAL MINIS [Concomitant]
     Active Substance: CALCIUM\CHOLECALCIFEROL\COPPER\MAGNESIUM\MANGANESE\ZINC
  3. MYRBETRIQ2 [Concomitant]
  4. SOLIFENACIN 5 MG TABLET (VESICARE) [Suspect]
     Active Substance: SOLIFENACIN SUCCINATE
     Indication: URINARY INCONTINENCE
     Dosage: ?          QUANTITY:1 TABLET(S);?
     Route: 048
     Dates: start: 20190911, end: 20190920
  5. HYDROCHLOROTHIAZIDE. [Concomitant]
     Active Substance: HYDROCHLOROTHIAZIDE
  6. SIMVASTATIN. [Concomitant]
     Active Substance: SIMVASTATIN
  7. ALENDRONATE SODIUM. [Concomitant]
     Active Substance: ALENDRONATE SODIUM
  8. CENTRUM SILVER [Concomitant]
     Active Substance: MINERALS\VITAMINS
  9. LOSARTAN POTASSIUM. [Concomitant]
     Active Substance: LOSARTAN POTASSIUM

REACTIONS (9)
  - Headache [None]
  - Constipation [None]
  - Dry mouth [None]
  - Abdominal discomfort [None]
  - Vision blurred [None]
  - Somnolence [None]
  - Therapy change [None]
  - Dry eye [None]
  - Urinary tract infection [None]

NARRATIVE: CASE EVENT DATE: 20190913
